FAERS Safety Report 8520875-4 (Version None)
Quarter: 2012Q3

REPORT INFORMATION
  Report Type: 
  Country: None (occurrence: None)
  Receive Date: 20120719
  Receipt Date: 20120710
  Transmission Date: 20120928
  Serious: Yes (Other)
  Sender: FDA-Public Use
  Company Number: US-JNJFOC-20120706487

PATIENT
  Age: 30 Year
  Sex: Male

DRUGS (2)
  1. INVEGA SUSTENNA [Suspect]
     Indication: SCHIZOPHRENIA
     Route: 030
     Dates: start: 20120301
  2. COGENTIN [Concomitant]
     Route: 065

REACTIONS (4)
  - URINARY INCONTINENCE [None]
  - HALLUCINATION [None]
  - HYPERSOMNIA [None]
  - HEADACHE [None]
